FAERS Safety Report 6726722-5 (Version None)
Quarter: 2010Q2

REPORT INFORMATION
  Report Type: 
  Country: None (occurrence: None)
  Receive Date: 20100514
  Receipt Date: 20100503
  Transmission Date: 20101027
  Serious: Yes (Other)
  Sender: FDA-Public Use
  Company Number: US-ROCHE-702298

PATIENT
  Age: 28 Year
  Sex: Male

DRUGS (1)
  1. ACCUTANE [Suspect]
     Indication: DRUG USE FOR UNKNOWN INDICATION
     Dosage: THE PATIENT TOOK THE PRODUCT TWICE WHEN HE WAS AROUND 14-16 YEARS.
     Route: 065

REACTIONS (4)
  - ABDOMINAL PAIN UPPER [None]
  - ARTHRITIS [None]
  - FATIGUE [None]
  - PAIN [None]
